FAERS Safety Report 15050248 (Version 2)
Quarter: 2018Q2

REPORT INFORMATION
  Report Type: Report from Study
  Country: US (occurrence: US)
  Receive Date: 20180622
  Receipt Date: 20180625
  Transmission Date: 20180711
  Serious: Yes (Other)
  Sender: FDA-Public Use
  Company Number: US-BRISTOL-MYERS SQUIBB COMPANY-BMS-2018-054299

PATIENT
  Age: 60 Year
  Sex: Male

DRUGS (1)
  1. IPILIMUMAB [Suspect]
     Active Substance: IPILIMUMAB
     Indication: ADENOID CYSTIC CARCINOMA
     Dosage: 3 MG/KG, Q3WK
     Route: 065
     Dates: start: 201610

REACTIONS (3)
  - Myopathy [Recovered/Resolved]
  - Granuloma [Recovered/Resolved]
  - Neuritis [Recovered/Resolved]
